FAERS Safety Report 18386583 (Version 1)
Quarter: 2020Q4

REPORT INFORMATION
  Report Type: Spontaneous
  Country: US (occurrence: US)
  Receive Date: 20201014
  Receipt Date: 20201014
  Transmission Date: 20210114
  Serious: Yes (Death)
  Sender: FDA-Public Use
  Company Number: None

PATIENT
  Age: 73 Year
  Sex: Male
  Weight: 108.3 kg

DRUGS (17)
  1. ALBUTEROL. [Concomitant]
     Active Substance: ALBUTEROL
  2. AZTREONAM. [Concomitant]
     Active Substance: AZTREONAM
  3. INSULIN ASPART [Concomitant]
     Active Substance: INSULIN ASPART
  4. OXYCODONE [Concomitant]
     Active Substance: OXYCODONE
  5. SIMETHICONE (DIMETHICONE) [Concomitant]
     Active Substance: DIMETHICONE
  6. DEXMEDETOMIDINE. [Concomitant]
     Active Substance: DEXMEDETOMIDINE
  7. DILTIAZEM. [Concomitant]
     Active Substance: DILTIAZEM
  8. MORPHINE SULFATE. [Concomitant]
     Active Substance: MORPHINE SULFATE
  9. ONDANSETRON [Concomitant]
     Active Substance: ONDANSETRON
  10. ACETAMINOPHEN. [Concomitant]
     Active Substance: ACETAMINOPHEN
  11. POLYETHYLENE GLYCOL [Concomitant]
     Active Substance: POLYETHYLENE GLYCOLS
  12. REMDESIVIR SOLUTION 100MG VIAL [Suspect]
     Active Substance: REMDESIVIR
     Indication: COVID-19 PNEUMONIA
     Dosage: ?          OTHER ROUTE:IV?
     Dates: start: 20200724, end: 20200727
  13. CALCIUM CHLORIDE. [Concomitant]
     Active Substance: CALCIUM CHLORIDE
  14. DEXAMETHASONE. [Concomitant]
     Active Substance: DEXAMETHASONE
  15. REMDESIVIR SOLUTION 100MG VIAL [Suspect]
     Active Substance: REMDESIVIR
     Indication: COVID-19 PNEUMONIA
     Dosage: ?          OTHER ROUTE:IV?
     Dates: start: 20200723, end: 20200723
  16. FAMOTIDINE. [Concomitant]
     Active Substance: FAMOTIDINE
  17. PROPOFOL. [Concomitant]
     Active Substance: PROPOFOL

REACTIONS (5)
  - Bradycardia [None]
  - Mental status changes [None]
  - Lung infiltration [None]
  - Hypotension [None]
  - Respiratory failure [None]

NARRATIVE: CASE EVENT DATE: 20200825
